FAERS Safety Report 4327609-8 (Version None)
Quarter: 2004Q1

REPORT INFORMATION
  Report Type: 
  Country: None (occurrence: None)
  Receive Date: 20040325
  Receipt Date: 20040315
  Transmission Date: 20041129
  Serious: Yes (Death, Hospitalization)
  Sender: FDA-Public Use
  Company Number: 2004AP01667

PATIENT
  Age: 70 Year
  Sex: Male

DRUGS (2)
  1. IRESSA [Suspect]
     Indication: ADENOCARCINOMA
     Dosage: 250 MG DAILY PO
     Route: 047
  2. IRESSA [Suspect]
     Indication: NON-SMALL CELL LUNG CANCER
     Dosage: 250 MG DAILY PO
     Route: 047

REACTIONS (6)
  - DECREASED APPETITE [None]
  - DYSPNOEA [None]
  - LUNG ADENOCARCINOMA [None]
  - MALIGNANT NEOPLASM PROGRESSION [None]
  - MOVEMENT DISORDER [None]
  - RENAL FAILURE ACUTE [None]
